FAERS Safety Report 8002705 (Version 2)
Quarter: 2015Q2

REPORT INFORMATION
  Report Type: Report from Study
  Country: JP (occurrence: JP)
  Receive Date: 20110622
  Receipt Date: 20150430
  Transmission Date: 20150821
  Serious: Yes (Other)
  Sender: FDA-Public Use
  Company Number: PHHY2010JP22331

PATIENT
  Age: 92 Year
  Sex: Male
  Weight: 46 kg

DRUGS (11)
  1. MAINTATE [Concomitant]
     Active Substance: BISOPROLOL FUMARATE
     Indication: HYPERTENSION
     Dosage: 1.25 MG, UNK
     Route: 048
     Dates: start: 20081112
  2. MAINTATE [Concomitant]
     Active Substance: BISOPROLOL FUMARATE
     Dosage: 1.25 MG, UNK
     Route: 048
  3. BENET [Concomitant]
     Active Substance: RISEDRONATE SODIUM
     Dosage: 2.5 MG, UNK
     Route: 048
     Dates: start: 20070905
  4. PREDONINE [Concomitant]
     Active Substance: PREDNISOLONE\PREDNISOLONE ACETATE\PREDNISOLONE SODIUM SUCCINATE
     Dosage: 2.5 MG, UNK
     Route: 048
     Dates: start: 20080702, end: 20090120
  5. MUCOSTA [Concomitant]
     Active Substance: REBAMIPIDE
     Dosage: 200 MG, UNK
     Route: 048
     Dates: start: 20070905
  6. LANIRAPID [Concomitant]
     Active Substance: METILDIGOXIN
     Dosage: 0.05 MG, UNK
     Route: 048
     Dates: start: 20090218, end: 20090309
  7. DIOVAN [Suspect]
     Active Substance: VALSARTAN
     Indication: HYPERTENSION
     Dosage: 80 MG, QD
     Route: 048
     Dates: start: 20090121
  8. METHYCOBAL [Concomitant]
     Active Substance: METHYLCOBALAMIN
     Dosage: 1 MG, UNK
     Route: 048
     Dates: start: 20080116
  9. MAINTATE [Concomitant]
     Active Substance: BISOPROLOL FUMARATE
     Dosage: 1.25 MG, UNK
     Route: 048
  10. WARFARIN [Concomitant]
     Active Substance: WARFARIN
     Dosage: 1.5 MG, UNK
     Route: 048
     Dates: start: 20090218
  11. CALBLOCK [Concomitant]
     Active Substance: AZELNIDIPINE
     Indication: HYPERTENSION
     Dosage: 16 MG, UNK
     Route: 048
     Dates: start: 20081126, end: 20090121

REACTIONS (1)
  - Blood pressure diastolic decreased [Recovering/Resolving]

NARRATIVE: CASE EVENT DATE: 20090715
